FAERS Safety Report 6028842-X (Version None)
Quarter: 2009Q1

REPORT INFORMATION
  Report Type: 
  Country: None (occurrence: None)
  Receive Date: 20090106
  Receipt Date: 20081202
  Transmission Date: 20090719
  Serious: Yes (Life-Threatening)
  Sender: FDA-Public Use
  Company Number: JP-PFIZER INC-2008087310

PATIENT

DRUGS (5)
  1. CHAMPIX [Suspect]
     Route: 048
     Dates: start: 20080913, end: 20081021
  2. MEVALOTIN [Concomitant]
     Route: 048
     Dates: start: 19930101
  3. BASEN [Concomitant]
     Route: 048
     Dates: start: 19930101
  4. KETOBUN A [Concomitant]
     Route: 048
     Dates: start: 19930101
  5. GASMOTIN [Concomitant]
     Route: 048

REACTIONS (9)
  - ABDOMINAL DISTENSION [None]
  - ABNORMAL DREAMS [None]
  - DEPRESSED LEVEL OF CONSCIOUSNESS [None]
  - FEELING ABNORMAL [None]
  - INCORRECT DOSE ADMINISTERED [None]
  - JUDGEMENT IMPAIRED [None]
  - NAUSEA [None]
  - PALPITATIONS [None]
  - SOMNAMBULISM [None]
